FAERS Safety Report 6184163-6 (Version None)
Quarter: 2009Q2

REPORT INFORMATION
  Report Type: 
  Country: None (occurrence: None)
  Receive Date: 20090508
  Receipt Date: 20090429
  Transmission Date: 20091009
  Serious: Yes (Hospitalization, Other)
  Sender: FDA-Public Use
  Company Number: US-ABBOTT-09P-163-0570829-00

PATIENT
  Sex: Female
  Weight: 77.18 kg

DRUGS (10)
  1. HUMIRA [Suspect]
     Indication: OSTEOARTHRITIS
     Route: 058
     Dates: start: 20080416, end: 20081101
  2. HUMIRA [Suspect]
     Indication: OSTEOPOROSIS
  3. INSULIN [Concomitant]
     Indication: DIABETES MELLITUS
     Dosage: UNKNOWN
     Route: 058
  4. PREVACID [Concomitant]
     Indication: DYSPEPSIA
     Dosage: UNKNOWN
     Route: 048
  5. NEURONTIN [Concomitant]
     Indication: GOUT
     Dosage: UNKNOWN
  6. BENADRYL [Concomitant]
     Indication: DERMATITIS CONTACT
     Dosage: UNKNOWN
  7. ALLEGRA [Concomitant]
     Indication: HYPERSENSITIVITY
     Dosage: UKNOWN
  8. ALLEGRA [Concomitant]
  9. AMBIEN [Concomitant]
     Indication: INSOMNIA
     Dosage: UNKNOWN
  10. ZANFLEX [Concomitant]
     Indication: FIBROMYALGIA
     Dosage: UNKNOWN

REACTIONS (11)
  - ARTHRALGIA [None]
  - CONTUSION [None]
  - DEHYDRATION [None]
  - DEPRESSION [None]
  - DIARRHOEA [None]
  - FALL [None]
  - JOINT SWELLING [None]
  - NAUSEA [None]
  - RENAL FAILURE [None]
  - SMALL INTESTINAL STENOSIS [None]
  - VOMITING [None]
